FAERS Safety Report 17110099 (Version 1)
Quarter: 2019Q4

REPORT INFORMATION
  Report Type: Report from Study
  Country: CA (occurrence: CA)
  Receive Date: 20191204
  Receipt Date: 20191204
  Transmission Date: 20200122
  Serious: No
  Sender: FDA-Public Use
  Company Number: CA-BEH-2019110104

PATIENT
  Age: 60 Year
  Sex: Male

DRUGS (8)
  1. SULFATRIM [SULFADIAZINE;TRIMETHOPRIM] [Concomitant]
     Active Substance: SULFADIAZINE\TRIMETHOPRIM
  2. HIZENTRA [Suspect]
     Active Substance: HUMAN IMMUNOGLOBULIN G
     Indication: SECONDARY IMMUNODEFICIENCY
     Dosage: 10 GRAM, QW
     Route: 058
     Dates: start: 20191128
  3. MONTELUKAST [Concomitant]
     Active Substance: MONTELUKAST SODIUM
  4. HIZENTRA [Suspect]
     Active Substance: HUMAN IMMUNOGLOBULIN G
     Indication: LEUKAEMIA
     Dosage: UNK
     Route: 058
     Dates: start: 20191128, end: 20191128
  5. HIZENTRA [Suspect]
     Active Substance: HUMAN IMMUNOGLOBULIN G
     Dosage: UNK
     Route: 058
     Dates: start: 20191128, end: 20191128
  6. CORTISONE [Concomitant]
     Active Substance: CORTISONE
  7. AZITHROMYCIN ANHYDROUS. [Concomitant]
     Active Substance: AZITHROMYCIN ANHYDROUS
  8. VALACYCLOVIR [Concomitant]
     Active Substance: VALACYCLOVIR HYDROCHLORIDE

REACTIONS (2)
  - Injection site erythema [Recovering/Resolving]
  - Injection site pruritus [Recovering/Resolving]

NARRATIVE: CASE EVENT DATE: 20191128
